FAERS Safety Report 21962175 (Version 1)
Quarter: 2023Q1

REPORT INFORMATION
  Report Type: Spontaneous
  Country: ES (occurrence: ES)
  Receive Date: 20230207
  Receipt Date: 20230207
  Transmission Date: 20230418
  Serious: Yes (Other)
  Sender: FDA-Public Use
  Company Number: None

PATIENT
  Age: 40 Year
  Sex: Female

DRUGS (6)
  1. EXEMESTANE [Suspect]
     Active Substance: EXEMESTANE
     Indication: Breast cancer
     Dosage: 25 MG, 1X/DAY
     Route: 048
     Dates: start: 20221221
  2. AMOXICILLIN\CLAVULANATE POTASSIUM [Suspect]
     Active Substance: AMOXICILLIN\CLAVULANATE POTASSIUM
     Indication: Elective surgery
     Dosage: 1 TABLET, 3X/DAY
     Route: 048
     Dates: start: 20230123, end: 20230129
  3. CRESTOR [Concomitant]
     Active Substance: ROSUVASTATIN CALCIUM
     Indication: Type IIa hyperlipidaemia
     Dosage: 5 MG, 1X/DAYAT DINNER
     Route: 048
     Dates: start: 20220907
  4. LEVOTHYROXINE SODIUM [Concomitant]
     Active Substance: LEVOTHYROXINE SODIUM
     Indication: Hypothyroidism
     Dosage: 88 UG, 1X/DAY (BEFORE BREAKFAST)
     Route: 048
     Dates: start: 20221025
  5. CHOLECALCIFEROL [Concomitant]
     Active Substance: CHOLECALCIFEROL
     Indication: Breast cancer
     Dosage: 25.000 IU, MONTHLY (EVERY 30 DAYS)
     Route: 048
     Dates: start: 20221221
  6. PARACETAMOL CINFA [Concomitant]
     Indication: Elective surgery
     Dosage: 1 G, 3X/DAY (AT BREAKFAST-LUNCH-DINNER)
     Route: 048
     Dates: start: 20221008

REACTIONS (2)
  - Erythema [Recovering/Resolving]
  - Rash [Recovering/Resolving]

NARRATIVE: CASE EVENT DATE: 20230124
